FAERS Safety Report 9051540 (Version 2)
Quarter: 2013Q1

REPORT INFORMATION
  Report Type: Spontaneous
  Country: FR (occurrence: FR)
  Receive Date: 20130207
  Receipt Date: 20130307
  Transmission Date: 20140127
  Serious: Yes (Hospitalization)
  Sender: FDA-Public Use
  Company Number: FR-ABBOTT-13P-056-1044885-00

PATIENT
  Age: 62 None
  Sex: Female

DRUGS (5)
  1. DEPAKINE [Suspect]
     Indication: GLIOBLASTOMA
     Route: 048
     Dates: start: 20120212, end: 20120615
  2. LAMALINE [Suspect]
     Indication: DENTAL DISCOMFORT
     Route: 048
     Dates: start: 20120511, end: 20120515
  3. JOSACINE [Suspect]
     Indication: DENTAL DISCOMFORT
     Route: 048
     Dates: start: 20120511, end: 20120515
  4. JOSACINE [Suspect]
     Indication: INFECTION PROPHYLAXIS
  5. TEMERIT [Concomitant]
     Indication: PRODUCT USED FOR UNKNOWN INDICATION
     Route: 048

REACTIONS (8)
  - Tonsillar ulcer [Recovered/Resolved]
  - Cell death [Recovered/Resolved]
  - Alanine aminotransferase increased [Recovered/Resolved]
  - Hypersensitivity [Recovered/Resolved]
  - Pyrexia [Recovered/Resolved]
  - Cough [Recovered/Resolved]
  - Rash papular [Recovered/Resolved]
  - Prurigo [Recovered/Resolved]
